FAERS Safety Report 6756899-7 (Version None)
Quarter: 2010Q2

REPORT INFORMATION
  Report Type: 
  Country: None (occurrence: None)
  Receive Date: 20100604
  Receipt Date: 20100524
  Transmission Date: 20101027
  Serious: Yes (Hospitalization)
  Sender: FDA-Public Use
  Company Number: JP-PFIZER INC-2010065449

PATIENT
  Age: 8 Year
  Sex: Female
  Weight: 23 kg

DRUGS (2)
  1. SPIRONOLACTONE [Suspect]
  2. FUROSEMIDE [Suspect]

REACTIONS (1)
  - CARDIAC FAILURE [None]
